FAERS Safety Report 7137096-2 (Version None)
Quarter: 2010Q4

REPORT INFORMATION
  Report Type: 
  Country: None (occurrence: None)
  Receive Date: 20101119
  Receipt Date: 20101110
  Transmission Date: 20110411
  Serious: Yes (Hospitalization)
  Sender: FDA-Public Use
  Company Number: 2010SP05557

PATIENT
  Age: 66 Year
  Sex: Female
  Weight: 64 kg

DRUGS (3)
  1. TEMOZOLOMIDE [Suspect]
     Indication: OVARIAN CANCER
     Dosage: 345 MG;QD;PO
     Route: 048
     Dates: start: 20100812
  2. ABT-888 (INVESTIGATIONAL DRUG) [Suspect]
     Indication: OVARIAN CANCER
     Dosage: 40 MG;BID;PO
     Route: 048
     Dates: start: 20100812
  3. DOMPERIDONE [Concomitant]

REACTIONS (8)
  - ANAEMIA [None]
  - ASCITES [None]
  - FEBRILE NEUTROPENIA [None]
  - JOINT CONTRACTURE [None]
  - LYMPHOCYTE COUNT DECREASED [None]
  - PERIPHERAL SENSORY NEUROPATHY [None]
  - THROMBOCYTOPENIA [None]
  - WHITE BLOOD CELL COUNT DECREASED [None]
